FAERS Safety Report 16476499 (Version 3)
Quarter: 2019Q3

REPORT INFORMATION
  Report Type: Spontaneous
  Country: CL (occurrence: CL)
  Receive Date: 20190626
  Receipt Date: 20190829
  Transmission Date: 20191004
  Serious: Yes (Other)
  Sender: FDA-Public Use
  Company Number: CL-AMGEN-CHLSP2018174253

PATIENT
  Age: 62 Year
  Sex: Male
  Weight: 70 kg

DRUGS (2)
  1. GLUCERNA [Concomitant]
     Active Substance: AMINO ACIDS\DEXTROSE\ELECTROLYTES NOS\SOYBEAN OIL\VITAMINS
     Dosage: UNK
  2. VECTIBIX [Suspect]
     Active Substance: PANITUMUMAB
     Indication: COLORECTAL CANCER METASTATIC
     Dosage: 450 MILLIGRAM, CYCLICAL
     Route: 042
     Dates: start: 20181017

REACTIONS (17)
  - Disease progression [Not Recovered/Not Resolved]
  - Insomnia [Not Recovered/Not Resolved]
  - Mucosal inflammation [Not Recovered/Not Resolved]
  - Dermatitis acneiform [Not Recovered/Not Resolved]
  - Skin irritation [Recovered/Resolved]
  - Hyperaesthesia teeth [Not Recovered/Not Resolved]
  - Back pain [Not Recovered/Not Resolved]
  - Abdominal pain [Unknown]
  - Weight decreased [Not Recovered/Not Resolved]
  - Neuropathy peripheral [Unknown]
  - Diarrhoea [Not Recovered/Not Resolved]
  - Acne [Not Recovered/Not Resolved]
  - Anorectal discomfort [Not Recovered/Not Resolved]
  - Burning sensation [Recovered/Resolved]
  - Chapped lips [Not Recovered/Not Resolved]
  - Furuncle [Not Recovered/Not Resolved]
  - Nail disorder [Not Recovered/Not Resolved]

NARRATIVE: CASE EVENT DATE: 20181017
